FAERS Safety Report 6624860-9 (Version None)
Quarter: 2010Q1

REPORT INFORMATION
  Report Type: 
  Country: None (occurrence: None)
  Receive Date: 20100305
  Receipt Date: 20100218
  Transmission Date: 20100710
  Serious: Yes (Death)
  Sender: FDA-Public Use
  Company Number: 2010020043

PATIENT
  Age: 66 Year
  Sex: Male
  Weight: 59.8748 kg

DRUGS (9)
  1. ONSOLIS [Suspect]
     Indication: CANCER PAIN
     Dosage: 200 MCG, BU
     Route: 002
     Dates: start: 20091223, end: 20091223
  2. NEURONTIN [Concomitant]
  3. MS CONTIN [Concomitant]
  4. MORPHINE [Concomitant]
  5. ZOFRAN [Concomitant]
  6. AMBIEN [Concomitant]
  7. LOMOTIL [Concomitant]
  8. FLOMAX [Concomitant]
  9. PREVACID [Concomitant]

REACTIONS (3)
  - MALIGNANT NEOPLASM PROGRESSION [None]
  - MESOTHELIOMA [None]
  - SOMNOLENCE [None]
